FAERS Safety Report 22071162 (Version 1)
Quarter: 2023Q1

REPORT INFORMATION
  Report Type: Spontaneous
  Country: BR (occurrence: BR)
  Receive Date: 20230307
  Receipt Date: 20230307
  Transmission Date: 20230418
  Serious: Yes (Hospitalization, Other)
  Sender: FDA-Public Use
  Company Number: BR-002147023-NVSC2023BR050268

PATIENT
  Age: 57 Year
  Sex: Female
  Weight: 59 kg

DRUGS (4)
  1. KYMRIAH [Suspect]
     Active Substance: TISAGENLECLEUCEL
     Indication: Non-Hodgkin^s lymphoma
     Dosage: 4.1X108 VIABLE CELLS, (FROZEN BAG) ONCE/SINGLE
     Route: 042
     Dates: start: 20230228, end: 20230228
  2. MICAFUNGIN [Concomitant]
     Active Substance: MICAFUNGIN
     Indication: Prophylaxis
     Dosage: 100 MG, QD (AMPOULE BOTTLE)
     Route: 042
     Dates: start: 20230222, end: 20230228
  3. VALACYCLOVIR HYDROCHLORIDE [Concomitant]
     Active Substance: VALACYCLOVIR HYDROCHLORIDE
     Indication: Prophylaxis
     Dosage: 500 MG, QD (AMPOULE BOTTLE)
     Route: 042
     Dates: start: 20230222, end: 20230228
  4. PAMELOR [Concomitant]
     Active Substance: NORTRIPTYLINE HYDROCHLORIDE
     Indication: Depression
     Dosage: 10 MG, QD
     Route: 048
     Dates: start: 2020

REACTIONS (24)
  - Cyanosis [Recovered/Resolved]
  - Hypothermia [Recovered/Resolved]
  - Condition aggravated [Recovered/Resolved]
  - Hypotension [Recovered/Resolved]
  - Blood pressure abnormal [Recovering/Resolving]
  - Pyrexia [Recovered/Resolved]
  - Tremor [Recovered/Resolved]
  - Oxygen saturation abnormal [Recovered/Resolved]
  - Blood lactate dehydrogenase abnormal [Recovered/Resolved]
  - pH body fluid abnormal [Recovered/Resolved]
  - Carbon dioxide abnormal [Recovered/Resolved]
  - PO2 abnormal [Recovered/Resolved]
  - Blood bicarbonate abnormal [Recovered/Resolved]
  - Base excess abnormal [Recovered/Resolved]
  - C-reactive protein [Recovered/Resolved]
  - Infusion related reaction [Recovering/Resolving]
  - Cytokine release syndrome [Unknown]
  - Bacteraemia [Unknown]
  - Rash [Recovering/Resolving]
  - Erythema [Recovering/Resolving]
  - Oedema [Not Recovered/Not Resolved]
  - Weight increased [Not Recovered/Not Resolved]
  - Blood glucose abnormal [Unknown]
  - Chills [Recovering/Resolving]

NARRATIVE: CASE EVENT DATE: 20230228
